FAERS Safety Report 15459881 (Version 1)
Quarter: 2018Q4

REPORT INFORMATION
  Report Type: Spontaneous
  Country: US (occurrence: US)
  Receive Date: 20181001
  Receipt Date: 20181001
  Transmission Date: 20190204
  Serious: No
  Sender: FDA-Public Use
  Company Number: None

PATIENT
  Age: 70 Year
  Sex: Female
  Weight: 60.33 kg

DRUGS (1)
  1. FLUCONAZOLE 200MG [Suspect]
     Active Substance: FLUCONAZOLE
     Indication: COCCIDIOIDOMYCOSIS
     Route: 048

REACTIONS (9)
  - Ocular hyperaemia [None]
  - Pyrexia [None]
  - Alopecia [None]
  - Lung disorder [None]
  - Pruritus [None]
  - Cough [None]
  - Erythema [None]
  - Throat irritation [None]
  - Eye pruritus [None]

NARRATIVE: CASE EVENT DATE: 2018
